FAERS Safety Report 6598961-8 (Version None)
Quarter: 2010Q1

REPORT INFORMATION
  Report Type: 
  Country: None (occurrence: None)
  Receive Date: 20100224
  Receipt Date: 20090425
  Transmission Date: 20100710
  Serious: No
  Sender: FDA-Public Use
  Company Number: US-BRISTOL-MYERS SQUIBB COMPANY-14591481

PATIENT
  Age: 69 Year
  Sex: Female

DRUGS (10)
  1. METFORMIN HCL [Suspect]
     Indication: DIABETES MELLITUS
     Route: 048
     Dates: start: 20081101, end: 20090101
  2. LYRICA [Suspect]
  3. MOBIC [Suspect]
  4. XANAX [Suspect]
  5. ENALAPRIL MALEATE [Suspect]
  6. VYTORIN [Suspect]
  7. EFFEXOR [Suspect]
  8. DYAZIDE [Suspect]
  9. TENORMIN [Suspect]
  10. BABY ASPIRIN [Suspect]

REACTIONS (3)
  - BLOOD GLUCOSE DECREASED [None]
  - DIARRHOEA [None]
  - TREMOR [None]
